FAERS Safety Report 16898072 (Version 3)
Quarter: 2019Q4

REPORT INFORMATION
  Report Type: Report from Study
  Country: IT (occurrence: IT)
  Receive Date: 20191009
  Receipt Date: 20191213
  Transmission Date: 20200122
  Serious: Yes (Other)
  Sender: FDA-Public Use
  Company Number: IT-ACCORD-156614

PATIENT
  Age: 50 Year
  Sex: Female

DRUGS (1)
  1. SERTRALINE [Suspect]
     Active Substance: SERTRALINE HYDROCHLORIDE
     Route: 048
     Dates: start: 20190619, end: 20190619

REACTIONS (4)
  - Confusional state [Recovering/Resolving]
  - Intentional self-injury [Unknown]
  - Tachycardia [Recovering/Resolving]
  - Overdose [Unknown]

NARRATIVE: CASE EVENT DATE: 20190621
